FAERS Safety Report 7453883-5 (Version None)
Quarter: 2011Q2

REPORT INFORMATION
  Report Type: 
  Country: None (occurrence: None)
  Receive Date: 20110502
  Receipt Date: 20110419
  Transmission Date: 20111010
  Serious: Yes (Other)
  Sender: FDA-Public Use
  Company Number: PHHY2011HU31804

PATIENT
  Age: 83 Year
  Sex: Female

DRUGS (8)
  1. INDAPAMIDE [Concomitant]
  2. ACENOCOUMAROL [Interacting]
  3. SIMVASTATIN [Interacting]
  4. ATORVASTATIN [Interacting]
     Dosage: UNK
  5. ALLOPURINOL [Concomitant]
  6. PERINDOPRIL [Concomitant]
  7. CATAFLAM [Suspect]
     Dosage: 50 MG, UNK
  8. METFORMIN HYDROCHLORIDE [Concomitant]

REACTIONS (3)
  - HAEMORRHAGE [None]
  - INTERNATIONAL NORMALISED RATIO INCREASED [None]
  - DRUG INTERACTION [None]
